FAERS Safety Report 12152861 (Version 6)
Quarter: 2016Q4

REPORT INFORMATION
  Report Type: Report from Study
  Country: IT (occurrence: IT)
  Receive Date: 20160305
  Receipt Date: 20161122
  Transmission Date: 20170207
  Serious: Yes (Hospitalization)
  Sender: FDA-Public Use
  Company Number: IT-AMGEN-ITACT2015123601

PATIENT
  Age: 72 Year
  Sex: Male

DRUGS (15)
  1. DEXAMETHASONE. [Suspect]
     Active Substance: DEXAMETHASONE
     Indication: PLASMA CELL MYELOMA
     Dosage: 20 MG, PER CHEMO REGIM
     Route: 042
     Dates: start: 20151111
  2. CARFILZOMIB [Suspect]
     Active Substance: CARFILZOMIB
     Indication: PLASMA CELL MYELOMA
     Dosage: 38 MG, PER CHEMO REGIM
     Route: 042
     Dates: start: 20151111
  3. WARFARIN [Concomitant]
     Active Substance: WARFARIN
     Dosage: 5-25 MG, UNK
     Route: 048
     Dates: start: 20150406, end: 20160801
  4. FOLATE [Concomitant]
     Active Substance: FOLATE SODIUM
     Dosage: 5 MG, UNK
     Route: 048
     Dates: start: 20151023, end: 20151111
  5. ACYCLOVIR. [Concomitant]
     Active Substance: ACYCLOVIR
     Dosage: 400 MG, UNK
     Route: 048
     Dates: start: 20151111, end: 20160801
  6. FILGRASTIM [Concomitant]
     Active Substance: FILGRASTIM
     Dosage: 1 UNK, UNK
     Route: 058
     Dates: start: 20151114, end: 20151128
  7. TACHIDOL [Concomitant]
     Active Substance: ACETAMINOPHEN\CODEINE PHOSPHATE
     Dosage: 1 UNK, UNK
     Route: 048
     Dates: start: 20150522, end: 20160801
  8. DOBETIN [Concomitant]
     Active Substance: CYANOCOBALAMIN
     Dosage: 5000 UNK, UNK
     Route: 030
     Dates: start: 20151023, end: 20151122
  9. ROSUVASTATIN. [Concomitant]
     Active Substance: ROSUVASTATIN
     Dosage: 20 MG, QD
     Route: 048
     Dates: start: 20141104, end: 20160801
  10. SALBUTAMOL [Concomitant]
     Active Substance: ALBUTEROL
     Dosage: 7 GTT, TID
     Route: 050
     Dates: start: 20150221, end: 20160801
  11. LANSOPRAZOLE. [Concomitant]
     Active Substance: LANSOPRAZOLE
     Dosage: 30 MG, QD
     Route: 048
     Dates: start: 20150227, end: 20160801
  12. METHYLPREDNISOLONE. [Concomitant]
     Active Substance: METHYLPREDNISOLONE
     Dosage: 16 MG, UNK
     Route: 048
     Dates: start: 20150113, end: 20160119
  13. RAMIPRIL. [Concomitant]
     Active Substance: RAMIPRIL
     Dosage: 2.5-5 MG, UNK
     Route: 048
     Dates: start: 20141104, end: 20160801
  14. CARBAMAZEPINE. [Concomitant]
     Active Substance: CARBAMAZEPINE
     Dosage: 500 MG, UNK
     Route: 048
     Dates: start: 20150227, end: 20160801
  15. BECLOMETASONE DIPROPIONATE [Concomitant]
     Active Substance: BECLOMETHASONE DIPROPIONATE
     Dosage: 0.8 MG, TID
     Route: 050
     Dates: start: 20150221, end: 20160801

REACTIONS (1)
  - Acute myocardial infarction [Recovered/Resolved]

NARRATIVE: CASE EVENT DATE: 20151116
